FAERS Safety Report 8972573 (Version 1)
Quarter: 2012Q4

REPORT INFORMATION
  Report Type: Spontaneous
  Country: GB (occurrence: None)
  Receive Date: 20121207
  Receipt Date: 20121207
  Transmission Date: 20130627
  Serious: Yes (Hospitalization)
  Sender: FDA-Public Use
  Company Number: AUR-APL-2012-05183

PATIENT
  Age: 78 Year
  Sex: Male
  Weight: 82.55 kg

DRUGS (3)
  1. BISOPROLOL [Suspect]
     Route: 048
     Dates: start: 20120920
  2. PERINDOPRIL [Suspect]
     Dosage: (4 mg),  Oral
09/20/2012 - Ongoing
     Route: 048
     Dates: start: 20120920
  3. ASPIRIN (ACETYLSALICYLIC ACID) [Suspect]
     Route: 048
     Dates: start: 20120920

REACTIONS (1)
  - Abscess [None]
